FAERS Safety Report 4809815-9 (Version None)
Quarter: 2005Q4

REPORT INFORMATION
  Report Type: 
  Country: None (occurrence: None)
  Receive Date: 20051026
  Receipt Date: 20030731
  Transmission Date: 20060501
  Serious: Yes (Other)
  Sender: FDA-Public Use
  Company Number: 2003AP02825

PATIENT
  Age: 15490 Day
  Sex: Male

DRUGS (8)
  1. IRESSA [Suspect]
     Indication: LUNG NEOPLASM MALIGNANT
     Route: 048
     Dates: start: 20030617
  2. PACLITAXEL [Suspect]
  3. CARBOPLATIN [Suspect]
     Dosage: AUC 6
  4. GEMCITABINE [Suspect]
  5. VINORELBINE [Suspect]
  6. MUCOSTA [Concomitant]
     Route: 048
     Dates: start: 20030324
  7. NAUZELIN [Concomitant]
     Route: 048
     Dates: start: 20030325
  8. RADIATION THERAPY [Concomitant]
     Dosage: 30 GY ADMINISTERED TO WHOLE BRAIN
     Route: 065
     Dates: start: 20030312

REACTIONS (2)
  - DRUG INEFFECTIVE [None]
  - PNEUMOTHORAX [None]
